FAERS Safety Report 9458704 (Version 1)
Quarter: 2013Q3

REPORT INFORMATION
  Report Type: Spontaneous
  Country: BR (occurrence: BR)
  Receive Date: 20130814
  Receipt Date: 20130814
  Transmission Date: 20140515
  Serious: Yes (Death)
  Sender: FDA-Public Use
  Company Number: BR-JNJFOC-20130803931

PATIENT
  Sex: Female

DRUGS (6)
  1. HALDOL [Suspect]
     Indication: PRODUCT USED FOR UNKNOWN INDICATION
     Route: 065
  2. AMPLICTIL [Concomitant]
     Route: 065
  3. TEGRETOL [Concomitant]
     Route: 065
  4. DIAZEPAM [Concomitant]
     Route: 065
  5. FENERGAN [Concomitant]
     Route: 065
  6. SIMVASTATIN [Concomitant]
     Route: 065

REACTIONS (1)
  - Death [Fatal]
